FAERS Safety Report 19697071 (Version 1)
Quarter: 2021Q3

REPORT INFORMATION
  Report Type: Spontaneous
  Country: FR (occurrence: FR)
  Receive Date: 20210812
  Receipt Date: 20210812
  Transmission Date: 20211014
  Serious: Yes (Life-Threatening)
  Sender: FDA-Public Use
  Company Number: FR-JNJFOC-20210813208

PATIENT
  Age: 61 Year
  Sex: Female

DRUGS (7)
  1. IBUPROFENE [Concomitant]
     Active Substance: IBUPROFEN
  2. BREXIN [PARACETAMOL] [Concomitant]
  3. SPECIAFOLDINE [Concomitant]
     Active Substance: FOLIC ACID
  4. METOJECT [Concomitant]
     Active Substance: METHOTREXATE SODIUM
  5. IXPRIM [Concomitant]
     Active Substance: ACETAMINOPHEN\TRAMADOL HYDROCHLORIDE
  6. SIMPONI [Suspect]
     Active Substance: GOLIMUMAB
     Indication: RHEUMATOID ARTHRITIS
     Route: 058
     Dates: start: 20210610
  7. PROLIA [Concomitant]
     Active Substance: DENOSUMAB

REACTIONS (1)
  - Acute myocardial infarction [Recovering/Resolving]

NARRATIVE: CASE EVENT DATE: 20210610
